FAERS Safety Report 4996759-5 (Version None)
Quarter: 2006Q2

REPORT INFORMATION
  Report Type: 
  Country: None (occurrence: None)
  Receive Date: 20060505
  Receipt Date: 20060428
  Transmission Date: 20061013
  Serious: Yes (Death, Hospitalization)
  Sender: FDA-Public Use
  Company Number: 2006044539

PATIENT
  Sex: Male

DRUGS (2)
  1. LIPITOR [Suspect]
     Indication: ILL-DEFINED DISORDER
     Dosage: 10 MG (DAILY)
     Dates: start: 20000101
  2. LOPID [Suspect]
     Indication: ILL-DEFINED DISORDER
     Dosage: 600 MG (DAILY)
     Dates: start: 20000101

REACTIONS (6)
  - BLOOD CREATINE PHOSPHOKINASE INCREASED [None]
  - CHRONIC OBSTRUCTIVE PULMONARY DISEASE [None]
  - HYPERCHOLESTEROLAEMIA [None]
  - PNEUMONIA [None]
  - RESPIRATORY FAILURE [None]
  - TERMINAL STATE [None]
